FAERS Safety Report 9749391 (Version 2)
Quarter: 2014Q1

REPORT INFORMATION
  Report Type: Spontaneous
  Country: US (occurrence: US)
  Receive Date: 20131212
  Receipt Date: 20140110
  Transmission Date: 20141002
  Serious: Yes (Hospitalization)
  Sender: FDA-Public Use
  Company Number: US-JNJFOC-20131203612

PATIENT
  Sex: Male
  Weight: 62.6 kg

DRUGS (1)
  1. NUCYNTA IR [Suspect]
     Indication: PROCEDURAL PAIN
     Route: 048
     Dates: start: 2011

REACTIONS (3)
  - Gastrointestinal motility disorder [Unknown]
  - Pancreatitis [Unknown]
  - Drug dose omission [Not Recovered/Not Resolved]
